FAERS Safety Report 10967885 (Version 2)
Quarter: 2015Q2

REPORT INFORMATION
  Report Type: Spontaneous
  Country: US (occurrence: US)
  Receive Date: 20150330
  Receipt Date: 20150519
  Transmission Date: 20150821
  Serious: Yes (Death, Other)
  Sender: FDA-Public Use
  Company Number: US-GLAXOSMITHKLINE-US2015GSK040797

PATIENT
  Sex: Female
  Weight: 52.15 kg

DRUGS (1)
  1. VOTRIENT [Suspect]
     Active Substance: PAZOPANIB HYDROCHLORIDE
     Indication: RENAL CANCER
     Dosage: 800 MG, QD
     Route: 065
     Dates: start: 20150125, end: 201503

REACTIONS (5)
  - Respiratory failure [Fatal]
  - Drug ineffective [Unknown]
  - Renal cancer metastatic [Fatal]
  - Disease progression [Unknown]
  - Metastases to lung [Fatal]
